FAERS Safety Report 13572106 (Version 3)
Quarter: 2017Q3

REPORT INFORMATION
  Report Type: Spontaneous
  Country: IT (occurrence: IT)
  Receive Date: 20170523
  Receipt Date: 20170807
  Transmission Date: 20171127
  Serious: Yes (Hospitalization, Other)
  Sender: FDA-Public Use
  Company Number: IT-AMGEN-ITASP2017076899

PATIENT
  Age: 59 Year
  Sex: Male
  Weight: 55 kg

DRUGS (7)
  1. KYPROLIS [Suspect]
     Active Substance: CARFILZOMIB
     Indication: PLASMA CELL MYELOMA
     Dosage: 34 MG, CYCLICAL
     Route: 042
     Dates: start: 20170508, end: 20170510
  2. PANTOPRAZOL [Concomitant]
     Active Substance: PANTOPRAZOLE SODIUM
     Dosage: 40 MG, UNK
     Route: 048
  3. ALLOPURINOL. [Concomitant]
     Active Substance: ALLOPURINOL
     Dosage: 300 MG, UNK
  4. NORMIX [Concomitant]
     Active Substance: RIFAXIMIN
     Dosage: UNK
  5. LAMIVUDINA [Concomitant]
     Active Substance: LAMIVUDINE
     Dosage: 100 MG, UNK
     Route: 048
  6. DIDROGYL [Concomitant]
     Active Substance: CALCIFEDIOL
     Dosage: UNK
  7. REVLIMID [Suspect]
     Active Substance: LENALIDOMIDE
     Indication: PLASMA CELL MYELOMA
     Dosage: 25 MG, QD
     Route: 048
     Dates: start: 20170508, end: 20170510

REACTIONS (2)
  - Hyperbilirubinaemia [Not Recovered/Not Resolved]
  - Plasma cell myeloma recurrent [Unknown]

NARRATIVE: CASE EVENT DATE: 201705
